FAERS Safety Report 16547820 (Version 2)
Quarter: 2021Q3

REPORT INFORMATION
  Report Type: Spontaneous
  Country: US (occurrence: US)
  Receive Date: 20190709
  Receipt Date: 20210906
  Transmission Date: 20211014
  Serious: No
  Sender: FDA-Public Use
  Company Number: US-SA-2019SA182208

PATIENT
  Age: 61 Year
  Sex: Male

DRUGS (1)
  1. DUPIXENT [Suspect]
     Active Substance: DUPILUMAB
     Indication: DERMATITIS ATOPIC
     Dosage: 300 MG, QOW
     Route: 058
     Dates: start: 20190605

REACTIONS (6)
  - Vision blurred [Unknown]
  - Back disorder [Unknown]
  - Limb discomfort [Unknown]
  - Eczema [Unknown]
  - Therapeutic response shortened [Unknown]
  - Eye discharge [Unknown]
